FAERS Safety Report 5858337-5 (Version None)
Quarter: 2008Q3

REPORT INFORMATION
  Report Type: 
  Country: None (occurrence: None)
  Receive Date: 20080826
  Receipt Date: 20080818
  Transmission Date: 20090109
  Serious: Yes (Other)
  Sender: FDA-Public Use
  Company Number: PHHY2008BR18265

PATIENT
  Age: 54 Year
  Sex: Male
  Weight: 82 kg

DRUGS (3)
  1. FLOTAC [Suspect]
     Indication: JOINT INJURY
     Dosage: 140 MG/DAY; 2 TABLETS/DAY
     Route: 048
     Dates: start: 20080815, end: 20080817
  2. AMLODIPINE BESYLATE [Concomitant]
     Indication: HYPERTENSION
     Dosage: 5 MG/DAY ; 1 TABLET DAILY
     Route: 048
  3. DIOVAN HCT [Concomitant]
     Indication: HYPERTENSION
     Dosage: (160/35) MG/DAY ; 1 TABLET DAILY
     Route: 048

REACTIONS (3)
  - ASTHENIA [None]
  - BEDRIDDEN [None]
  - DIARRHOEA [None]
